FAERS Safety Report 15688398 (Version 1)
Quarter: 2018Q4

REPORT INFORMATION
  Report Type: Spontaneous
  Country: AU (occurrence: AU)
  Receive Date: 20181205
  Receipt Date: 20181205
  Transmission Date: 20190205
  Serious: Yes (Hospitalization)
  Sender: FDA-Public Use
  Company Number: AU-BAXTER-2018BAX029271

PATIENT
  Age: 77 Year
  Sex: Male

DRUGS (3)
  1. CITRATE BUFFER [Suspect]
     Active Substance: SODIUM CITRATE
     Indication: PRODUCT USED FOR UNKNOWN INDICATION
     Dosage: COMPOUNDED WITH SODIUM CHLORIDE 0.9% AND FLUBICLOX
     Route: 065
  2. SODIUM CHLORIDE (VIAFLO) 1000ML [Suspect]
     Active Substance: SODIUM CHLORIDE
     Indication: MEDICATION DILUTION
     Dosage: COMPOUNDED WITH FLUBICLOX AND CITRATE BUFFER
     Route: 065
  3. FLUBICLOX [Suspect]
     Active Substance: FLUCLOXACILLIN
     Indication: PRODUCT USED FOR UNKNOWN INDICATION
     Dosage: COMPOUNDED WITH SODIUM CHLORIDE 0.9% AND CITRATE BUFFER
     Route: 065

REACTIONS (4)
  - Eye swelling [Unknown]
  - Lip swelling [Unknown]
  - Swelling face [Unknown]
  - Peripheral swelling [Unknown]

NARRATIVE: CASE EVENT DATE: 20181122
